FAERS Safety Report 20318987 (Version 1)
Quarter: 2022Q1

REPORT INFORMATION
  Report Type: Spontaneous
  Country: GR (occurrence: GR)
  Receive Date: 20220110
  Receipt Date: 20220110
  Transmission Date: 20220423
  Serious: Yes (Death)
  Sender: FDA-Public Use
  Company Number: GR-SHIRE-GR201900350

PATIENT
  Age: 75 Year
  Sex: Female

DRUGS (2)
  1. KIOVIG [Suspect]
     Active Substance: HUMAN IMMUNOGLOBULIN G
     Indication: Acute motor axonal neuropathy
     Dosage: 400 MG/KG, 1X/DAY:QD, FOR 5 DAYS
     Route: 042
  2. ABRAXANE [Concomitant]
     Active Substance: PACLITAXEL
     Indication: Chemotherapy

REACTIONS (1)
  - Drug ineffective [Fatal]
